FAERS Safety Report 7778170-7 (Version None)
Quarter: 2011Q3

REPORT INFORMATION
  Report Type: 
  Country: None (occurrence: None)
  Receive Date: 20110922
  Receipt Date: 20110907
  Transmission Date: 20111222
  Serious: Yes (Life-Threatening, Hospitalization)
  Sender: FDA-Public Use
  Company Number: DE-1187775

PATIENT
  Age: 54 Year
  Sex: Male

DRUGS (8)
  1. FLUORESCITE [Suspect]
     Dosage: INTRAVENOUS BOLUS
     Route: 040
     Dates: start: 20110822, end: 20110822
  2. GLURENORM [Concomitant]
  3. LASIX [Concomitant]
  4. BERODUAL [Concomitant]
  5. ENALAPRIL MALEATE [Concomitant]
  6. NITRENDIPINE [Concomitant]
  7. SIMVASTATIN [Concomitant]
  8. OMEPRAZOLE [Concomitant]

REACTIONS (5)
  - RESPIRATORY FAILURE [None]
  - URINARY INCONTINENCE [None]
  - SKIN DISCOLOURATION [None]
  - CONVULSION [None]
  - HYPERSENSITIVITY [None]
